FAERS Safety Report 17670517 (Version 1)
Quarter: 2020Q2

REPORT INFORMATION
  Report Type: Spontaneous
  Country: IT (occurrence: IT)
  Receive Date: 20200415
  Receipt Date: 20200415
  Transmission Date: 20200713
  Serious: Yes (Other)
  Sender: FDA-Public Use
  Company Number: IT-MYLANLABS-2020M1037343

PATIENT
  Age: 73 Year
  Sex: Female

DRUGS (7)
  1. PACLITAXEL. [Suspect]
     Active Substance: PACLITAXEL
     Dosage: 80 MG/M2
     Route: 065
  2. TRASTUZUMAB. [Suspect]
     Active Substance: TRASTUZUMAB
     Dosage: 2 MG/KG WEEKLY FOR 11 CYCLES
     Route: 065
  3. EPIRUBICIN [Suspect]
     Active Substance: EPIRUBICIN
     Dosage: 902 MG/M2, EVERY 4 CYCLE (WITH AN INTER-CYCLE INTERVAL OF 21 DAYS)
     Route: 065
  4. TRASTUZUMAB. [Suspect]
     Active Substance: TRASTUZUMAB
     Dosage: 6 MG/KG FOR 13 CYCLES (INTER-CYCLE PAUSES OF 21 DAYS)
     Route: 065
  5. TRASTUZUMAB. [Suspect]
     Active Substance: TRASTUZUMAB
     Dosage: 4 MG/KG FOR THE FIRST WEEK
     Route: 065
  6. ENDOXAN                            /00021102/ [Suspect]
     Active Substance: CYCLOPHOSPHAMIDE
     Dosage: 600 MG/M2, EVERY 4 CYCLES (WITH AN INTER-CYCLE INTERVAL OF 21 DAYS)
     Route: 065
  7. TRASTUZUMAB. [Suspect]
     Active Substance: TRASTUZUMAB
     Dosage: 2 MG/KG EVERY 3 CYCLES
     Route: 065

REACTIONS (1)
  - Cardiac dysfunction [Not Recovered/Not Resolved]
